FAERS Safety Report 13002440 (Version 4)
Quarter: 2017Q1

REPORT INFORMATION
  Report Type: Report from Study
  Country: BG (occurrence: BG)
  Receive Date: 20161206
  Receipt Date: 20170222
  Transmission Date: 20170428
  Serious: Yes (Death, Other)
  Sender: FDA-Public Use
  Company Number: BG-TOLMAR, INC.-2016BG012745

PATIENT
  Age: 65 Year
  Sex: Male
  Weight: 93 kg

DRUGS (6)
  1. DEXAMETHASONE. [Concomitant]
     Active Substance: DEXAMETHASONE
     Dosage: UNK
     Dates: start: 20150728, end: 20150928
  2. ELIGARD [Suspect]
     Active Substance: LEUPROLIDE ACETATE
     Indication: PROSTATE CANCER
     Dosage: 45 MG, 6 MONTHS
     Route: 058
     Dates: start: 20150425
  3. ZOLEDRONIC ACID [Concomitant]
     Active Substance: ZOLEDRONIC ACID
     Dosage: UNK
     Dates: start: 20150928
  4. ELIGARD [Suspect]
     Active Substance: LEUPROLIDE ACETATE
     Dosage: 45 MG, 6 MONTHS
     Route: 058
     Dates: start: 20151107
  5. DOCETAXEL. [Concomitant]
     Active Substance: DOCETAXEL
     Dosage: UNK
     Dates: start: 20150728, end: 20150928
  6. XGEVA [Concomitant]
     Active Substance: DENOSUMAB
     Dosage: UNK
     Dates: start: 20150728, end: 20150928

REACTIONS (4)
  - Respiratory failure [Fatal]
  - Cardiac failure [Fatal]
  - Poisoning [Fatal]
  - Prostate cancer [Fatal]

NARRATIVE: CASE EVENT DATE: 20150918
